FAERS Safety Report 4848765-9 (Version None)
Quarter: 2005Q4

REPORT INFORMATION
  Report Type: 
  Country: None (occurrence: None)
  Receive Date: 20051206
  Receipt Date: 20051115
  Transmission Date: 20060501
  Serious: Yes (Hospitalization)
  Sender: FDA-Public Use
  Company Number: ES200511001903

PATIENT
  Age: 50 Year
  Sex: Female

DRUGS (3)
  1. ZYPREXA [Suspect]
     Indication: BIPOLAR DISORDER
     Dosage: 20 MG, DAILY (1/D), ORAL
     Route: 048
     Dates: start: 20050801
  2. TEGRETOL [Concomitant]
  3. VALIUM [Concomitant]

REACTIONS (4)
  - COLONIC ATONY [None]
  - INTESTINAL DILATATION [None]
  - NEOPLASM [None]
  - NEUROGENIC BLADDER [None]
